FAERS Safety Report 5683778-9 (Version None)
Quarter: 2008Q1

REPORT INFORMATION
  Report Type: 
  Country: None (occurrence: None)
  Receive Date: 20080328
  Receipt Date: 20061018
  Transmission Date: 20080703
  Serious: Yes (Other)
  Sender: FDA-Public Use
  Company Number: US-BAYER-US-2006-024843

PATIENT
  Age: 17 Year
  Sex: Female
  Weight: 72 kg

DRUGS (1)
  1. MIRENA [Suspect]
     Indication: CONTRACEPTION
     Route: 015
     Dates: start: 20060626, end: 20060827

REACTIONS (2)
  - CERVICITIS [None]
  - PELVIC INFLAMMATORY DISEASE [None]
